FAERS Safety Report 10025333 (Version 1)
Quarter: 2014Q1

REPORT INFORMATION
  Report Type: Spontaneous
  Country: BR (occurrence: BR)
  Receive Date: 20140320
  Receipt Date: 20140320
  Transmission Date: 20141002
  Serious: Yes (Other)
  Sender: FDA-Public Use
  Company Number: BR-GLAXOSMITHKLINE-A1065908A

PATIENT
  Age: 5 Year
  Sex: Male
  Weight: 23 kg

DRUGS (2)
  1. ZINNAT [Suspect]
     Indication: TONSILLITIS
     Dosage: 6ML TWICE PER DAY
     Route: 048
     Dates: start: 20140228, end: 20140303
  2. PRELONE [Concomitant]

REACTIONS (3)
  - Haematochezia [Not Recovered/Not Resolved]
  - Abdominal pain [Unknown]
  - Mucous stools [Not Recovered/Not Resolved]
